FAERS Safety Report 14416250 (Version 1)
Quarter: 2018Q1

REPORT INFORMATION
  Report Type: Spontaneous
  Country: US (occurrence: US)
  Receive Date: 20180122
  Receipt Date: 20180122
  Transmission Date: 20180509
  Serious: No
  Sender: FDA-Public Use
  Company Number: US-AUROBINDO-AUR-APL-2017-41184

PATIENT
  Sex: Female

DRUGS (1)
  1. MIRTAZAPINE ORALLY DISINTEGRATING TABLETS 30 MG [Suspect]
     Active Substance: MIRTAZAPINE
     Indication: PRODUCT USED FOR UNKNOWN INDICATION
     Dosage: HALF A PILL AND SOMETIMES 1/4TH OF A PILL
     Route: 065
     Dates: start: 20170819

REACTIONS (4)
  - Product substitution issue [Recovered/Resolved]
  - Product taste abnormal [Recovered/Resolved]
  - Drug ineffective [Recovered/Resolved]
  - Somnolence [Recovered/Resolved]
